FAERS Safety Report 10025774 (Version 1)
Quarter: 2014Q1

REPORT INFORMATION
  Report Type: Spontaneous
  Country: US (occurrence: US)
  Receive Date: 20140320
  Receipt Date: 20140320
  Transmission Date: 20141002
  Serious: No
  Sender: FDA-Public Use
  Company Number: US-B.I. PHARMACEUTICALS,INC./RIDGEFIELD-2014-BI-11472BP

PATIENT
  Age: 76 Year
  Sex: Female

DRUGS (5)
  1. GILOTRIF [Suspect]
     Indication: LUNG NEOPLASM MALIGNANT
     Dosage: 40 MG
     Route: 048
     Dates: start: 20140307
  2. MITRAZIPINE [Concomitant]
     Dosage: 15 MG
     Route: 048
  3. ASPIRIN [Concomitant]
     Dosage: 81 MCG
     Route: 048
  4. VITAMIN D [Concomitant]
     Route: 065
  5. FOLIC ACID [Concomitant]
     Route: 065

REACTIONS (2)
  - Oral pain [Not Recovered/Not Resolved]
  - Lip swelling [Not Recovered/Not Resolved]
